FAERS Safety Report 8294438-2 (Version None)
Quarter: 2012Q2

REPORT INFORMATION
  Report Type: 
  Country: None (occurrence: None)
  Receive Date: 20120418
  Receipt Date: 20120411
  Transmission Date: 20120825
  Serious: Yes (Other)
  Sender: FDA-Public Use
  Company Number: PHEH2012US007890

PATIENT
  Sex: Female

DRUGS (2)
  1. RECLAST [Suspect]
     Dosage: UNK
     Route: 042
     Dates: start: 20001231, end: 20100401
  2. FOSAMAX [Suspect]
     Dosage: UNK
     Dates: start: 20001231, end: 20100401

REACTIONS (6)
  - FEMUR FRACTURE [None]
  - INJURY [None]
  - QUALITY OF LIFE DECREASED [None]
  - EMOTIONAL DISTRESS [None]
  - PAIN [None]
  - ANHEDONIA [None]
